FAERS Safety Report 22604418 (Version 1)
Quarter: 2023Q2

REPORT INFORMATION
  Report Type: Spontaneous
  Country: SY (occurrence: SY)
  Receive Date: 20230615
  Receipt Date: 20230615
  Transmission Date: 20230721
  Serious: Yes (Death)
  Sender: FDA-Public Use
  Company Number: SY-MYLANLABS-2023M1063266

PATIENT
  Age: 3 Year
  Sex: Female

DRUGS (1)
  1. CYSTAGON [Suspect]
     Active Substance: CYSTEAMINE BITARTRATE
     Indication: Product used for unknown indication
     Dosage: 1 DOSAGE FORM, Q6H
     Route: 048
     Dates: start: 202204

REACTIONS (2)
  - Death [Fatal]
  - Inability to afford medication [Unknown]

NARRATIVE: CASE EVENT DATE: 20230501
